FAERS Safety Report 9542131 (Version 2)
Quarter: 2013Q4

REPORT INFORMATION
  Report Type: Spontaneous
  Country: DE (occurrence: SE)
  Receive Date: 20130923
  Receipt Date: 20131008
  Transmission Date: 20140711
  Serious: Yes (Hospitalization)
  Sender: FDA-Public Use
  Company Number: SE-FRI-1000048959

PATIENT
  Age: 79 Year
  Sex: Male

DRUGS (8)
  1. MEMANTINE [Suspect]
     Indication: DEMENTIA
     Dosage: 20 MG
     Route: 048
     Dates: start: 20130201, end: 20130525
  2. ARICEPT [Suspect]
     Dosage: 10 MG
     Route: 048
     Dates: end: 20130524
  3. LEVAXIN [Concomitant]
     Dosage: 50 MCG
  4. CITALOPRAM [Concomitant]
     Dosage: 10 MG
  5. EFFORTIL [Concomitant]
     Dosage: 10 MG
  6. PANODIL [Concomitant]
  7. TROMBYL [Concomitant]
     Dosage: 75 MG
  8. MOVICOL [Concomitant]

REACTIONS (4)
  - Fall [Unknown]
  - Muscular weakness [Unknown]
  - Gait disturbance [Unknown]
  - Balance disorder [Unknown]
